FAERS Safety Report 21959060 (Version 1)
Quarter: 2023Q1

REPORT INFORMATION
  Report Type: Spontaneous
  Country: US (occurrence: None)
  Receive Date: 20230203
  Receipt Date: 20230203
  Transmission Date: 20230418
  Serious: Yes (Death)
  Sender: FDA-Public Use
  Company Number: None

PATIENT
  Sex: Male

DRUGS (1)
  1. LUMAKRAS [Suspect]
     Active Substance: SOTORASIB
     Indication: Lung carcinoma cell type unspecified stage 0
     Dosage: OTHER QUANTITY : 8 TABLETS;?FREQUENCY : DAILY;?
     Route: 048
     Dates: start: 202212

REACTIONS (2)
  - Malignant neoplasm progression [None]
  - Lung neoplasm malignant [None]
